FAERS Safety Report 15255074 (Version 1)
Quarter: 2018Q3

REPORT INFORMATION
  Report Type: Spontaneous
  Country: US (occurrence: US)
  Receive Date: 20180717
  Receipt Date: 20180717
  Transmission Date: 20181010
  Serious: Yes (Other)
  Sender: FDA-Public Use
  Company Number: None

PATIENT
  Age: 62 Year
  Sex: Female
  Weight: 88 kg

DRUGS (3)
  1. ALPRAZOLAM 0.5MG [Concomitant]
     Active Substance: ALPRAZOLAM
     Dates: start: 20170929
  2. NIFEDIPINE 30MG ER [Concomitant]
     Dates: start: 20171201
  3. LISINOPRIL. [Suspect]
     Active Substance: LISINOPRIL
     Route: 048
     Dates: start: 20180628, end: 20180717

REACTIONS (3)
  - Palpitations [None]
  - Arrhythmia [None]
  - Product substitution issue [None]

NARRATIVE: CASE EVENT DATE: 20180711
